FAERS Safety Report 5947766-7 (Version None)
Quarter: 2008Q4

REPORT INFORMATION
  Report Type: 
  Country: None (occurrence: None)
  Receive Date: 20081111
  Receipt Date: 20081030
  Transmission Date: 20090506
  Serious: Yes (Other)
  Sender: FDA-Public Use
  Company Number: DE-JNJFOC-20080300591

PATIENT
  Age: 46 Year
  Sex: Female
  Weight: 120 kg

DRUGS (2)
  1. INVEGA [Suspect]
     Route: 048
  2. INVEGA [Suspect]
     Indication: DELUSIONAL DISORDER, PERSECUTORY TYPE
     Route: 048

REACTIONS (5)
  - DRUG INEFFECTIVE [None]
  - FEAR OF DEATH [None]
  - INFLUENZA LIKE ILLNESS [None]
  - PSYCHOTIC DISORDER [None]
  - SLEEP DISORDER [None]
